FAERS Safety Report 13636501 (Version 1)
Quarter: 2017Q2

REPORT INFORMATION
  Report Type: Spontaneous
  Country: US (occurrence: US)
  Receive Date: 20170531
  Receipt Date: 20170531
  Transmission Date: 20170830
  Serious: No
  Sender: FDA-Public Use
  Company Number: US-ASTELLAS-1829772

PATIENT
  Sex: Female

DRUGS (9)
  1. NIACIN. [Concomitant]
     Active Substance: NIACIN
  2. IMODIUM [Concomitant]
     Active Substance: LOPERAMIDE HYDROCHLORIDE
  3. TRAMADOL. [Concomitant]
     Active Substance: TRAMADOL
  4. LOSARTAN. [Concomitant]
     Active Substance: LOSARTAN
  5. TARCEVA [Suspect]
     Active Substance: ERLOTINIB HYDROCHLORIDE
     Indication: LUNG NEOPLASM MALIGNANT
     Route: 048
     Dates: start: 20160627
  6. LIPITOR [Concomitant]
     Active Substance: ATORVASTATIN CALCIUM
  7. PRED FORTE [Concomitant]
     Active Substance: PREDNISOLONE ACETATE
  8. WARFARIN [Concomitant]
     Active Substance: WARFARIN
  9. TRIAMTERENE. [Concomitant]
     Active Substance: TRIAMTERENE

REACTIONS (3)
  - Dry skin [Unknown]
  - Rhinorrhoea [Unknown]
  - Diarrhoea [Unknown]
